FAERS Safety Report 9110185 (Version 2)
Quarter: 2013Q2

REPORT INFORMATION
  Report Type: Report from Study
  Country: JP (occurrence: JP)
  Receive Date: 20130222
  Receipt Date: 20130621
  Transmission Date: 20140414
  Serious: Yes (Other)
  Sender: FDA-Public Use
  Company Number: JP-B.I. PHARMACEUTICALS,INC./RIDGEFIELD-2013-BI-04229NB

PATIENT
  Age: 91 Year
  Sex: Male
  Weight: 60 kg

DRUGS (2)
  1. PRADAXA [Suspect]
     Indication: CEREBROVASCULAR ACCIDENT PROPHYLAXIS
     Dosage: 220 MG
     Route: 048
     Dates: start: 20120328, end: 20120413
  2. BAYASPIRIN [Concomitant]
     Dosage: 100 MG
     Route: 048
     Dates: end: 20120328

REACTIONS (2)
  - Colon cancer [Recovered/Resolved]
  - Gastrointestinal haemorrhage [Recovered/Resolved]
